FAERS Safety Report 9717340 (Version 1)
Quarter: 2013Q4

REPORT INFORMATION
  Report Type: Spontaneous
  Country: IT (occurrence: IT)
  Receive Date: 20131127
  Receipt Date: 20131127
  Transmission Date: 20140711
  Serious: Yes (Hospitalization)
  Sender: FDA-Public Use
  Company Number: IT-TEVA-445478ISR

PATIENT
  Age: 83 Year
  Sex: Male

DRUGS (4)
  1. RISPERIDONE [Suspect]
     Dosage: 2 MILLIGRAM DAILY; 2 MG 1 TIME PER DAY
     Route: 048
     Dates: start: 20130926, end: 20131003
  2. AMLODIPINE BESYLATE [Suspect]
     Dates: start: 20130101, end: 20131003
  3. TARGIN - 5 MG/2,5 MG COMPRESSE A RILASCIO PROLUNGATO [Suspect]
     Dosage: 1 DOSAGE FORMS DAILY; 1 DF 1 TIME PER DAY
     Route: 048
     Dates: start: 20130926, end: 20131003
  4. CARDIOASPIRIN - 100 MG COMPRESSE GASTRORESISTENTI [Concomitant]

REACTIONS (1)
  - Agitation [Recovering/Resolving]
